FAERS Safety Report 4593981-7 (Version None)
Quarter: 2005Q1

REPORT INFORMATION
  Report Type: 
  Country: None (occurrence: None)
  Receive Date: 20050218
  Receipt Date: 20050202
  Transmission Date: 20050727
  Serious: Yes (Hospitalization)
  Sender: FDA-Public Use
  Company Number: 2005-0008009

PATIENT
  Age: 43 Year
  Sex: Male
  Weight: 70 kg

DRUGS (5)
  1. VIREAD [Suspect]
     Indication: HIV INFECTION
     Dosage: 300 MG, 1 IN 1 D, ORAL
     Route: 048
     Dates: start: 20020715, end: 20041222
  2. ZERIT [Suspect]
     Indication: HIV INFECTION
     Dosage: 2 IN 1 D, ORAL
     Route: 048
     Dates: start: 20020715, end: 20041222
  3. VIDEX [Suspect]
     Dosage: 1 IN 1 D, ORAL
     Route: 048
     Dates: start: 20020715, end: 20041222
  4. DELAYED AKINETON (BIPERIDEN HYDROCHLORIDE) [Concomitant]
  5. CLOZAPINE [Concomitant]

REACTIONS (9)
  - CYTOLYTIC HEPATITIS [None]
  - CYTOMEGALOVIRUS TEST POSITIVE [None]
  - HEPATITIS A POSITIVE [None]
  - HEPATITIS B POSITIVE [None]
  - HEPATITIS C POSITIVE [None]
  - HEPATOTOXICITY [None]
  - MITOCHONDRIAL CYTOPATHY [None]
  - PANCREATITIS [None]
  - WEIGHT DECREASED [None]
